FAERS Safety Report 20582552 (Version 3)
Quarter: 2022Q2

REPORT INFORMATION
  Report Type: Other
  Country: BE (occurrence: None)
  Receive Date: 20220311
  Receipt Date: 20220418
  Transmission Date: 20220721
  Serious: Yes (Other)
  Sender: FDA-Public Use
  Company Number: BE-ROCHE-3040219

PATIENT
  Sex: Female
  Weight: 70 kg

DRUGS (11)
  1. OCRELIZUMAB [Suspect]
     Active Substance: OCRELIZUMAB
     Indication: Relapsing-remitting multiple sclerosis
     Route: 042
     Dates: start: 20190805
  2. LEVOTHYROXINE [Concomitant]
     Active Substance: LEVOTHYROXINE
     Route: 048
  3. LEVOTHYROXINE [Concomitant]
     Active Substance: LEVOTHYROXINE
     Route: 048
  4. DESO 20 [Concomitant]
     Route: 048
  5. CYANOCOBALAMIN\FOLIC ACID\PYRIDOXINE HYDROCHLORIDE [Concomitant]
     Active Substance: CYANOCOBALAMIN\FOLIC ACID\PYRIDOXINE HYDROCHLORIDE
     Dosage: 1 OTHER
     Route: 048
     Dates: start: 20170206
  6. CHOLECALCIFEROL [Concomitant]
     Active Substance: CHOLECALCIFEROL
     Route: 048
     Dates: start: 20170202
  7. PANTOPRAZOLE SODIUM [Concomitant]
     Active Substance: PANTOPRAZOLE SODIUM
     Route: 048
     Dates: start: 20200818, end: 20210222
  8. MIRABEGRON [Concomitant]
     Active Substance: MIRABEGRON
     Route: 048
     Dates: start: 20200217
  9. TOVIAZ [Concomitant]
     Active Substance: FESOTERODINE FUMARATE
     Route: 048
  10. RANOMAX [Concomitant]
     Route: 048
  11. PFIZER-BIONTECH COVID-19 VACCINE [Concomitant]
     Active Substance: TOZINAMERAN
     Dosage: NEXT DOSE: 19-05-2021
     Dates: start: 20210623

REACTIONS (3)
  - Infection [Recovered/Resolved]
  - Anal abscess [Recovered/Resolved]
  - COVID-19 [Recovered/Resolved]

NARRATIVE: CASE EVENT DATE: 20210101
